FAERS Safety Report 14128051 (Version 1)
Quarter: 2017Q4

REPORT INFORMATION
  Report Type: Spontaneous
  Country: US (occurrence: US)
  Receive Date: 20171026
  Receipt Date: 20171026
  Transmission Date: 20180321
  Serious: Yes (Other)
  Sender: FDA-Public Use
  Company Number: US-TEVA-712571USA

PATIENT
  Sex: Female

DRUGS (16)
  1. FLUDROCORTISONE [Concomitant]
     Active Substance: FLUDROCORTISONE
  2. VITAMIN D3 [Concomitant]
     Active Substance: CHOLECALCIFEROL
  3. LUTEIN [Concomitant]
     Active Substance: LUTEIN
  4. ALL ONE POWDER VITAMINS [Concomitant]
  5. MAGNESIUM [Concomitant]
     Active Substance: MAGNESIUM
  6. ZINC. [Concomitant]
     Active Substance: ZINC
  7. GLUCOSAMINE [Concomitant]
     Active Substance: GLUCOSAMINE
  8. CALCIUM [Concomitant]
     Active Substance: CALCIUM
  9. VALIUM [Concomitant]
     Active Substance: DIAZEPAM
     Indication: VERTIGO
  10. CLARITIN-D NOS [Concomitant]
     Active Substance: LORATADINE\PSEUDOEPHEDRINE SULFATE
     Indication: PARANASAL SINUS DISCOMFORT
  11. ASPIRIN. [Concomitant]
     Active Substance: ASPIRIN
  12. VALIUM [Concomitant]
     Active Substance: DIAZEPAM
     Indication: DIZZINESS
     Dosage: 2 MG OR 4 MG AS NEEDED
  13. FOLIC ACID. [Concomitant]
     Active Substance: FOLIC ACID
  14. CHONDROITIN [Concomitant]
     Active Substance: CHONDROITIN
  15. HYDROXYCARBAMIDE [Suspect]
     Active Substance: HYDROXYUREA
     Indication: MYELOPROLIFERATIVE NEOPLASM
     Dates: start: 20160210, end: 20161202
  16. VITAMIN B12 [Concomitant]
     Active Substance: CYANOCOBALAMIN

REACTIONS (11)
  - Adverse reaction [Unknown]
  - Rash pruritic [Not Recovered/Not Resolved]
  - Ocular hyperaemia [Not Recovered/Not Resolved]
  - Drug dose omission [Unknown]
  - Fall [Unknown]
  - Injury [Not Recovered/Not Resolved]
  - Stomatitis [Not Recovered/Not Resolved]
  - Rash [Not Recovered/Not Resolved]
  - Nightmare [Not Recovered/Not Resolved]
  - Insomnia [Not Recovered/Not Resolved]
  - Paraesthesia [Not Recovered/Not Resolved]

NARRATIVE: CASE EVENT DATE: 201609
